FAERS Safety Report 15645035 (Version 1)
Quarter: 2018Q4

REPORT INFORMATION
  Report Type: Spontaneous
  Country: US (occurrence: US)
  Receive Date: 20181121
  Receipt Date: 20181121
  Transmission Date: 20190205
  Serious: No
  Sender: FDA-Public Use
  Company Number: US-PFIZER INC-2017555769

PATIENT
  Age: 69 Year
  Sex: Female

DRUGS (11)
  1. DOCETAXEL. [Suspect]
     Active Substance: DOCETAXEL
     Dosage: 75 MG/M2, CYCLIC (6 CYCLES)
     Dates: start: 20120516, end: 20120829
  2. PARAPLATIN [Concomitant]
     Active Substance: CARBOPLATIN
     Indication: BREAST CANCER FEMALE
     Dosage: 820 MG, UNK
     Dates: start: 20120516, end: 20120829
  3. HERCEPTIN [Concomitant]
     Active Substance: TRASTUZUMAB
     Indication: BREAST CANCER FEMALE
     Dosage: 6 MG/KG, UNK
     Dates: start: 20121001, end: 20130515
  4. METFORMIN [Concomitant]
     Active Substance: METFORMIN HYDROCHLORIDE
  5. ACETAMINOPHEN. [Concomitant]
     Active Substance: ACETAMINOPHEN
     Dosage: UNK
  6. ATIVAN [Concomitant]
     Active Substance: LORAZEPAM
  7. TAXOTERE [Suspect]
     Active Substance: DOCETAXEL
     Indication: BREAST CANCER FEMALE
     Dosage: 75 MG/M2, CYCLIC (6 CYCLES)
     Dates: start: 20120516, end: 20120829
  8. DOCUSATE [Concomitant]
     Active Substance: DOCUSATE
  9. SENNA ALEXANDRINA [Concomitant]
     Active Substance: SENNA LEAF
  10. HERCEPTIN [Concomitant]
     Active Substance: TRASTUZUMAB
     Dosage: 6 MG/KG, UNK
     Dates: start: 20121015, end: 201305
  11. LORATADINE. [Concomitant]
     Active Substance: LORATADINE

REACTIONS (5)
  - Madarosis [Not Recovered/Not Resolved]
  - Hair texture abnormal [Not Recovered/Not Resolved]
  - Hair colour changes [Not Recovered/Not Resolved]
  - Alopecia [Not Recovered/Not Resolved]
  - Hair disorder [Not Recovered/Not Resolved]

NARRATIVE: CASE EVENT DATE: 201205
